FAERS Safety Report 7340066-2 (Version None)
Quarter: 2011Q1

REPORT INFORMATION
  Report Type: 
  Country: None (occurrence: None)
  Receive Date: 20110309
  Receipt Date: 20110223
  Transmission Date: 20110831
  Serious: Yes (Other)
  Sender: FDA-Public Use
  Company Number: PHHY2011AU03890

PATIENT
  Sex: Female

DRUGS (3)
  1. GLEEVEC [Suspect]
     Indication: CHRONIC MYELOID LEUKAEMIA
     Route: 048
     Dates: start: 20010101, end: 20080401
  2. INTERFERON ALFA [Suspect]
     Dosage: UNK
     Dates: end: 20101001
  3. GLEEVEC [Suspect]
     Dosage: 400 UNK, UNK
     Route: 048
     Dates: start: 20101123

REACTIONS (3)
  - NORMAL NEWBORN [None]
  - GESTATIONAL DIABETES [None]
  - DRUG EXPOSURE BEFORE PREGNANCY [None]
